FAERS Safety Report 4755837-6 (Version None)
Quarter: 2005Q3

REPORT INFORMATION
  Report Type: 
  Country: None (occurrence: None)
  Receive Date: 20050830
  Receipt Date: 20050506
  Transmission Date: 20060218
  Serious: Yes (Other)
  Sender: FDA-Public Use
  Company Number: US-BRISTOL-MYERS SQUIBB COMPANY-12958625

PATIENT
  Age: 52 Year
  Sex: Male
  Weight: 96 kg

DRUGS (7)
  1. ERBITUX [Suspect]
     Indication: COLON CANCER METASTATIC
     Route: 042
     Dates: start: 20050504, end: 20050504
  2. BENADRYL [Concomitant]
     Indication: PREMEDICATION
     Route: 042
     Dates: start: 20050504, end: 20050504
  3. DEXAMETHASONE [Concomitant]
     Indication: PREMEDICATION
     Route: 042
     Dates: start: 20050504, end: 20050504
  4. ELOXATIN [Concomitant]
     Indication: PREMEDICATION
     Route: 042
     Dates: start: 20050504, end: 20050504
  5. IRINOTECAN [Concomitant]
     Indication: PREMEDICATION
     Route: 042
     Dates: start: 20050504, end: 20050504
  6. FLOMAX [Concomitant]
  7. LORTAB [Concomitant]

REACTIONS (2)
  - RASH [None]
  - URTICARIA [None]
